FAERS Safety Report 8198960-9 (Version None)
Quarter: 2012Q1

REPORT INFORMATION
  Report Type: 
  Country: None (occurrence: None)
  Receive Date: 20120309
  Receipt Date: 20120305
  Transmission Date: 20120608
  Serious: Yes (Hospitalization)
  Sender: FDA-Public Use
  Company Number: JP-BAYER-2012-008442

PATIENT
  Age: 80 Year
  Sex: Male
  Weight: 52 kg

DRUGS (10)
  1. CEFAZOLIN SODIUM [Concomitant]
     Dosage: 3 G, UNK
     Route: 048
     Dates: start: 20111209
  2. NEXAVAR [Suspect]
     Indication: HEPATIC NEOPLASM MALIGNANT
     Dosage: 400 MG, BID
     Route: 048
     Dates: start: 20111209, end: 20111215
  3. NEXAVAR [Suspect]
     Dosage: 600 MG, UNK
     Route: 048
     Dates: start: 20111216, end: 20111231
  4. LASIX [Concomitant]
     Dosage: 10 MG, UNK
     Route: 048
     Dates: start: 20111209
  5. LIVACT [Concomitant]
     Dosage: 12.45 G, UNK
     Route: 048
     Dates: start: 20111209
  6. KAYWAN [Concomitant]
     Dosage: 5 MG, UNK
     Route: 048
     Dates: start: 20111209
  7. MARZULENE [Concomitant]
     Dosage: 1.5 G, UNK
     Route: 048
     Dates: start: 20111209
  8. ALLOPURINOL [Concomitant]
     Dosage: 100 MG, UNK
     Route: 048
     Dates: start: 20111209
  9. LANSOPRAZOLE [Concomitant]
     Dosage: 15 MG, UNK
     Route: 048
     Dates: start: 20111209
  10. TRICHLORMETHIAZIDE [Concomitant]
     Dosage: 1 MG, UNK
     Route: 048
     Dates: start: 20111209

REACTIONS (1)
  - HEPATIC ENCEPHALOPATHY [None]
